FAERS Safety Report 9835843 (Version 2)
Quarter: 2014Q1

REPORT INFORMATION
  Report Type: Report from Study
  Country: US (occurrence: US)
  Receive Date: 20140122
  Receipt Date: 20140311
  Transmission Date: 20141002
  Serious: Yes (Hospitalization, Other)
  Sender: FDA-Public Use
  Company Number: PHEH2014US001427

PATIENT
  Age: 65 Year
  Sex: Female
  Weight: 87.98 kg

DRUGS (3)
  1. GILENYA [Suspect]
     Indication: MULTIPLE SCLEROSIS
     Dosage: 0.5 MG, QD
     Route: 048
     Dates: start: 20130201
  2. CLONAZEPAM [Concomitant]
     Dosage: 0.5 MG, UNK
  3. LOVASTATIN [Concomitant]
     Dosage: 40 MG, UNK

REACTIONS (6)
  - Ankle fracture [Recovering/Resolving]
  - Lower limb fracture [Unknown]
  - Tendon rupture [Recovering/Resolving]
  - Gait disturbance [Recovering/Resolving]
  - Fatigue [Recovering/Resolving]
  - Muscular weakness [Recovering/Resolving]
